FAERS Safety Report 6842764-3 (Version None)
Quarter: 2010Q3

REPORT INFORMATION
  Report Type: 
  Country: None (occurrence: None)
  Receive Date: 20100714
  Receipt Date: 20080328
  Transmission Date: 20110219
  Serious: No
  Sender: FDA-Public Use
  Company Number: US-PFIZER INC-2007065685

PATIENT
  Sex: Female
  Weight: 90 kg

DRUGS (10)
  1. CHANTIX [Suspect]
     Indication: SMOKING CESSATION THERAPY
     Route: 048
     Dates: start: 20070601
  2. EFFEXOR [Concomitant]
     Route: 048
  3. PREVACID [Concomitant]
     Route: 048
  4. PROPRANOLOL HYDROCHLORIDE [Concomitant]
     Route: 048
  5. MULTIPLE VITAMIN [Concomitant]
     Route: 048
  6. FERROUS SULFATE TAB [Concomitant]
     Route: 048
  7. SEROQUEL [Concomitant]
     Route: 048
  8. ZYRTEC [Concomitant]
     Route: 048
     Dates: start: 20000101
  9. KLONOPIN [Concomitant]
     Indication: PANIC ATTACK
     Route: 048
  10. FLONASE [Concomitant]
     Indication: MULTIPLE ALLERGIES

REACTIONS (2)
  - STRESS [None]
  - TOBACCO USER [None]
